FAERS Safety Report 13462409 (Version 1)
Quarter: 2017Q2

REPORT INFORMATION
  Report Type: Spontaneous
  Country: US (occurrence: US)
  Receive Date: 20170420
  Receipt Date: 20170420
  Transmission Date: 20170830
  Serious: Yes (Other)
  Sender: FDA-Public Use
  Company Number: US-FRESENIUS KABI-FK201703236

PATIENT
  Age: 64 Year
  Sex: Female

DRUGS (1)
  1. DOXORUBICIN (MANUFACTURER UNKNOWN) [Suspect]
     Active Substance: DOXORUBICIN
     Indication: THYROID CANCER STAGE IV
     Route: 065

REACTIONS (1)
  - Odynophagia [Recovered/Resolved]
